FAERS Safety Report 5047120-9 (Version None)
Quarter: 2006Q3

REPORT INFORMATION
  Report Type: 
  Country: None (occurrence: None)
  Receive Date: 20060703
  Receipt Date: 20060621
  Transmission Date: 20061208
  Serious: Yes (Hospitalization)
  Sender: FDA-Public Use
  Company Number: 2006078839

PATIENT
  Age: 70 Year
  Sex: Female

DRUGS (5)
  1. ZYVOX [Suspect]
     Indication: PNEUMONIA STAPHYLOCOCCAL
     Dosage: 1200 MG (600 MG,2 IN 1 D), INTRAVENOUS
     Route: 042
     Dates: start: 20060607, end: 20060617
  2. TIENAM (IMIPENEM/CILASTATIN) (CILASTATIN, IMIPENEM) [Concomitant]
  3. PRODIF (FOSFLUCONAZOLE) (FOSFLUCONAZOLE) [Concomitant]
  4. ELASPOL (SIVELESTAT SODIUM HYDRATE) (SIVELESTAT) [Concomitant]
  5. SOLU-MEDROL [Concomitant]

REACTIONS (2)
  - PLATELET COUNT DECREASED [None]
  - STENOTROPHOMONAS INFECTION [None]
